FAERS Safety Report 15699568 (Version 5)
Quarter: 2019Q3

REPORT INFORMATION
  Report Type: Spontaneous
  Country: US (occurrence: US)
  Receive Date: 20181207
  Receipt Date: 20190807
  Transmission Date: 20191004
  Serious: Yes (Other)
  Sender: FDA-Public Use
  Company Number: US-BAYER-2018-223491

PATIENT
  Age: 35 Year
  Sex: Female

DRUGS (10)
  1. MIRENA [Suspect]
     Active Substance: LEVONORGESTREL
     Indication: MENORRHAGIA
  2. MIRENA [Suspect]
     Active Substance: LEVONORGESTREL
     Indication: CONTRACEPTION
  3. LAMICTAL [Suspect]
     Active Substance: LAMOTRIGINE
  4. MIRAPEX [Suspect]
     Active Substance: PRAMIPEXOLE DIHYDROCHLORIDE
  5. MIRENA [Suspect]
     Active Substance: LEVONORGESTREL
     Indication: MENORRHAGIA
  6. PROPANOLOL [PROPRANOLOL] [Suspect]
     Active Substance: PROPRANOLOL HYDROCHLORIDE
  7. TRAZODONE [Suspect]
     Active Substance: TRAZODONE HYDROCHLORIDE
  8. PROZAC [Suspect]
     Active Substance: FLUOXETINE HYDROCHLORIDE
  9. GABAPENTIN. [Suspect]
     Active Substance: GABAPENTIN
  10. MIRENA [Suspect]
     Active Substance: LEVONORGESTREL
     Indication: CONTRACEPTION
     Dosage: 20 MCG/24HR, CONT
     Route: 015
     Dates: start: 20180523

REACTIONS (7)
  - Drug interaction [None]
  - Contraindicated device used [None]
  - Pregnancy with contraceptive device [None]
  - Device dislocation [Not Recovered/Not Resolved]
  - Neglect of personal appearance [None]
  - Medical device monitoring error [None]
  - Drug abuse [None]

NARRATIVE: CASE EVENT DATE: 20180520
